FAERS Safety Report 9029024 (Version 1)
Quarter: 2013Q1

REPORT INFORMATION
  Report Type: Spontaneous
  Country: US (occurrence: US)
  Receive Date: 20130122
  Receipt Date: 20130122
  Transmission Date: 20140127
  Serious: Yes (Other)
  Sender: FDA-Public Use
  Company Number: PHEH2012US025094

PATIENT
  Age: 42 Year
  Sex: Female

DRUGS (3)
  1. GILENYA [Suspect]
     Indication: MULTIPLE SCLEROSIS
     Dosage: 0.5 MG, QD
     Route: 048
     Dates: start: 20120611
  2. AUGMENTIN                               /SCH/ [Concomitant]
     Indication: VAGINAL CELLULITIS
     Dosage: 500 MG, TID
     Route: 048
     Dates: start: 20120801, end: 20120808
  3. OXYCODONE [Concomitant]
     Indication: PELVIC PAIN
     Dosage: 5 MG, UNK
     Route: 048
     Dates: start: 20120801, end: 20120808

REACTIONS (7)
  - Rash [Recovered/Resolved]
  - Urticaria [Recovering/Resolving]
  - Food allergy [Recovering/Resolving]
  - Abasia [Recovering/Resolving]
  - Muscular weakness [Recovering/Resolving]
  - Stress [Recovering/Resolving]
  - Paraesthesia [Recovering/Resolving]
